FAERS Safety Report 11282845 (Version 2)
Quarter: 2015Q3

REPORT INFORMATION
  Report Type: Spontaneous
  Country: US (occurrence: US)
  Receive Date: 20150720
  Receipt Date: 20150730
  Transmission Date: 20151125
  Serious: No
  Sender: FDA-Public Use
  Company Number: US-BIOGENIDEC-2015BI100729

PATIENT
  Age: 64 Year
  Sex: Female

DRUGS (1)
  1. AVONEX [Suspect]
     Active Substance: INTERFERON BETA-1A
     Indication: MULTIPLE SCLEROSIS
     Route: 030
     Dates: start: 20120422, end: 20150629

REACTIONS (6)
  - Feeling abnormal [Unknown]
  - Arteriosclerosis [Not Recovered/Not Resolved]
  - Pain in extremity [Recovered/Resolved]
  - Hypersomnia [Recovered/Resolved]
  - Dyspepsia [Not Recovered/Not Resolved]
  - Pain [Recovered/Resolved]

NARRATIVE: CASE EVENT DATE: 20120422
